FAERS Safety Report 9643936 (Version 1)
Quarter: 2013Q4

REPORT INFORMATION
  Report Type: Spontaneous
  Country: AR (occurrence: AR)
  Receive Date: 20131024
  Receipt Date: 20131024
  Transmission Date: 20140711
  Serious: Yes (Hospitalization)
  Sender: FDA-Public Use
  Company Number: PHHY2013AR117362

PATIENT
  Age: 24 Year
  Sex: Male

DRUGS (2)
  1. HALOPERIDOL [Suspect]
     Indication: SCHIZOPHRENIA
  2. LORAZEPAM [Suspect]
     Indication: SCHIZOPHRENIA

REACTIONS (8)
  - Neuroleptic malignant syndrome [Recovered/Resolved]
  - Muscle rigidity [Recovered/Resolved]
  - Pyrexia [Recovered/Resolved]
  - Myalgia [Recovered/Resolved]
  - Sedation [Recovered/Resolved]
  - Loss of consciousness [Recovered/Resolved]
  - Leukocytosis [Recovered/Resolved]
  - Rhabdomyolysis [Recovered/Resolved]
